FAERS Safety Report 5158629-1 (Version None)
Quarter: 2006Q4

REPORT INFORMATION
  Report Type: 
  Country: None (occurrence: None)
  Receive Date: 20061128
  Receipt Date: 20060504
  Transmission Date: 20070319
  Serious: No
  Sender: FDA-Public Use
  Company Number: FR-ELI_LILLY_AND_COMPANY-FR200605002123

PATIENT
  Age: 60 Year
  Sex: Male
  Weight: 99.7 kg

DRUGS (2)
  1. CIALIS [Suspect]
     Indication: ERECTILE DYSFUNCTION
     Dosage: 20 MG, WEEKLY (1/W)
     Route: 048
     Dates: start: 20050101, end: 20060101
  2. TARKA [Concomitant]
     Indication: HYPERTENSION
     Dosage: 1 D/F, DAILY (1/D)
     Route: 048
     Dates: start: 20051201

REACTIONS (2)
  - VISION BLURRED [None]
  - VISUAL DISTURBANCE [None]
